FAERS Safety Report 6355801-X (Version None)
Quarter: 2009Q3

REPORT INFORMATION
  Report Type: 
  Country: None (occurrence: None)
  Receive Date: 20090915
  Receipt Date: 20070713
  Transmission Date: 20100115
  Serious: Yes (Other)
  Sender: FDA-Public Use
  Company Number: US-ASTRAZENECA-2007UW09609

PATIENT
  Age: 29155 Day
  Sex: Female
  Weight: 98.9 kg

DRUGS (32)
  1. SEROQUEL [Suspect]
     Indication: INSOMNIA
     Route: 048
     Dates: start: 20060404, end: 20060427
  2. SEROQUEL [Suspect]
     Indication: DEPRESSION
     Route: 048
     Dates: start: 20060404, end: 20060427
  3. SEROQUEL [Suspect]
     Indication: ANXIETY
     Route: 048
     Dates: start: 20060404, end: 20060427
  4. SEROQUEL [Suspect]
     Route: 048
     Dates: start: 20060417, end: 20060517
  5. SEROQUEL [Suspect]
     Route: 048
     Dates: start: 20060417, end: 20060517
  6. SEROQUEL [Suspect]
     Route: 048
     Dates: start: 20060417, end: 20060517
  7. MIRTAZAPINE [Concomitant]
     Dates: start: 20061226
  8. ZOCOR [Concomitant]
     Indication: BLOOD CHOLESTEROL INCREASED
     Dosage: 20-40 MG
     Route: 048
     Dates: start: 20050916
  9. ZELNORM [Concomitant]
     Indication: GASTROOESOPHAGEAL REFLUX DISEASE
     Dosage: 12-120 MG, DAILY
     Route: 048
     Dates: start: 20050916
  10. NEURONTIN [Concomitant]
     Indication: CONVULSION
     Dosage: 100-900 MG
     Route: 048
     Dates: start: 20000428
  11. DETROL LA [Concomitant]
     Indication: URINARY INCONTINENCE
     Dosage: 4-400 MG
     Route: 048
     Dates: start: 20030911
  12. DILANTIN [Concomitant]
     Indication: CONVULSION
     Dosage: 100-400 MG
     Route: 048
     Dates: start: 20031130
  13. DILANTIN [Concomitant]
     Indication: GRAND MAL CONVULSION
     Dosage: 100-400 MG
     Route: 048
     Dates: start: 20031130
  14. SINEMET [Concomitant]
     Indication: PARKINSON'S DISEASE
     Dosage: 25/100 MG STRENGTH
     Route: 048
     Dates: start: 20060402, end: 20060515
  15. ELAVIL [Concomitant]
     Indication: DEPRESSION
     Dosage: 10-25 MG
     Route: 048
     Dates: start: 19971204, end: 20060427
  16. ELAVIL [Concomitant]
     Indication: ANXIETY
     Dosage: 10-25 MG
     Route: 048
     Dates: start: 19971204, end: 20060427
  17. ELAVIL [Concomitant]
     Indication: CONVULSION
     Dosage: 10-25 MG
     Route: 048
     Dates: start: 19971204, end: 20060427
  18. AVANDIA [Concomitant]
     Dosage: 4-40 MG
     Route: 048
     Dates: start: 20051003
  19. TYLENOL W/ CODEINE NO. 3 [Concomitant]
     Indication: PAIN
     Dates: start: 19971204
  20. TYLENOL W/ CODEINE NO. 3 [Concomitant]
     Indication: MUSCULOSKELETAL PAIN
     Dates: start: 19971204
  21. MYSOLINE [Concomitant]
     Indication: CONVULSION
     Dosage: 25-150 MG
     Route: 048
     Dates: start: 20040520, end: 20060427
  22. MYSOLINE [Concomitant]
     Indication: ESSENTIAL TREMOR
     Dosage: 25-150 MG
     Route: 048
     Dates: start: 20040520, end: 20060427
  23. DARVOCET-N 100 [Concomitant]
     Indication: HEADACHE
     Route: 048
     Dates: start: 20000401
  24. DARVOCET-N 100 [Concomitant]
     Indication: PAIN
     Route: 048
     Dates: start: 20000401
  25. BENICAR [Concomitant]
     Dosage: 4-40 MG. DAILY
     Route: 048
     Dates: start: 20050916
  26. PREDNISONE [Concomitant]
     Dosage: 5-20 MG
     Route: 048
     Dates: start: 19960724
  27. COUMADIN [Concomitant]
     Indication: DEEP VEIN THROMBOSIS
     Dates: start: 20001130
  28. COUMADIN [Concomitant]
     Dates: start: 20061005
  29. TOPROL-XL [Concomitant]
     Indication: HYPERTENSION
     Dosage: 50-200 MG
     Route: 048
     Dates: start: 20011130
  30. ZOLOFT [Concomitant]
     Indication: ANXIETY
     Dosage: 50-75 MG
     Route: 048
     Dates: start: 20060515
  31. KEPPRA [Concomitant]
     Indication: CONVULSION
     Dosage: 500-2000 MG
     Dates: start: 20060427
  32. LASIX [Concomitant]
     Indication: HYPERTENSION
     Dosage: 20-80 MG, DAILY
     Route: 048
     Dates: start: 19970217

REACTIONS (8)
  - CONVULSION [None]
  - DIABETIC NEPHROPATHY [None]
  - DIPLOPIA [None]
  - NEUROPATHY PERIPHERAL [None]
  - TREMOR [None]
  - TYPE 2 DIABETES MELLITUS [None]
  - VISION BLURRED [None]
  - VISUAL ACUITY REDUCED [None]
